FAERS Safety Report 13285201 (Version 1)
Quarter: 2017Q1

REPORT INFORMATION
  Report Type: Spontaneous
  Country: US (occurrence: US)
  Receive Date: 20170301
  Receipt Date: 20170301
  Transmission Date: 20170428
  Serious: No
  Sender: FDA-Public Use
  Company Number: None

PATIENT
  Age: 61 Year
  Sex: Male

DRUGS (1)
  1. ENBREL [Suspect]
     Active Substance: ETANERCEPT
     Indication: RHEUMATOID ARTHRITIS
     Dosage: 25MG VIAL TWICE A WEEK SQ
     Route: 058

REACTIONS (4)
  - Staphylococcal infection [None]
  - Acne [None]
  - Infection [None]
  - Furuncle [None]

NARRATIVE: CASE EVENT DATE: 20170301
